FAERS Safety Report 14786718 (Version 4)
Quarter: 2018Q2

REPORT INFORMATION
  Report Type: Report from Study
  Country: US (occurrence: US)
  Receive Date: 20180420
  Receipt Date: 20180626
  Transmission Date: 20180711
  Serious: Yes (Hospitalization)
  Sender: FDA-Public Use
  Company Number: US-ACTELION-A-NJ2018-170978

PATIENT
  Age: 21 Year
  Sex: Female
  Weight: 61.22 kg

DRUGS (4)
  1. ADEMPAS [Concomitant]
     Active Substance: RIOCIGUAT
  2. LETAIRIS [Concomitant]
     Active Substance: AMBRISENTAN
  3. UPTRAVI [Suspect]
     Active Substance: SELEXIPAG
     Indication: PULMONARY ARTERIAL HYPERTENSION
     Dosage: 1000 MCG, BID
     Route: 048
  4. REMODULIN [Concomitant]
     Active Substance: TREPROSTINIL

REACTIONS (7)
  - Chest pain [Unknown]
  - Viral infection [Unknown]
  - Bronchitis [Unknown]
  - Fatigue [Unknown]
  - Dyspnoea [Unknown]
  - Pain in extremity [Unknown]
  - Systemic lupus erythematosus [Unknown]

NARRATIVE: CASE EVENT DATE: 20180606
